FAERS Safety Report 17801953 (Version 1)
Quarter: 2020Q2

REPORT INFORMATION
  Report Type: Spontaneous
  Country: US (occurrence: US)
  Receive Date: 20200518
  Receipt Date: 20200518
  Transmission Date: 20200714
  Serious: No
  Sender: FDA-Public Use
  Company Number: None

PATIENT
  Sex: Female
  Weight: 56.25 kg

DRUGS (2)
  1. ETONOGESTERE ETHYNYL EST VAG RING [Suspect]
     Active Substance: ETHINYL ESTRADIOL\ETONOGESTREL
     Indication: CONTRACEPTION
     Dosage: ?          OTHER FREQUENCY:ONE EVERY 21 DAYS;?
     Route: 067
     Dates: start: 20200227
  2. ETONOGESTERE ETHYNYL EST VAG RING [Suspect]
     Active Substance: ETHINYL ESTRADIOL\ETONOGESTREL
     Indication: MENSTRUAL DISORDER
     Dosage: ?          OTHER FREQUENCY:ONE EVERY 21 DAYS;?
     Route: 067
     Dates: start: 20200227

REACTIONS (5)
  - Muscle spasms [None]
  - Insurance issue [None]
  - Menorrhagia [None]
  - Diarrhoea [None]
  - Product substitution issue [None]
